FAERS Safety Report 25579005 (Version 1)
Quarter: 2025Q3

REPORT INFORMATION
  Report Type: Spontaneous
  Country: CA (occurrence: CA)
  Receive Date: 20250718
  Receipt Date: 20250718
  Transmission Date: 20251020
  Serious: Yes (Hospitalization)
  Sender: MYLAN
  Company Number: CA-MYLANLABS-2025M1060176

PATIENT
  Sex: Female

DRUGS (16)
  1. VALPROIC ACID [Suspect]
     Active Substance: VALPROIC ACID
     Indication: Schizoaffective disorder
     Dosage: 1500 MILLIGRAM, QD (1 EVERY 1 DAY)
  2. VALPROIC ACID [Suspect]
     Active Substance: VALPROIC ACID
     Indication: Personality disorder
  3. LITHIUM [Suspect]
     Active Substance: LITHIUM
     Indication: Schizoaffective disorder
  4. LITHIUM [Suspect]
     Active Substance: LITHIUM
     Indication: Personality disorder
     Dosage: 1200 MILLIGRAM, QD (1 EVERY 1 DAY)
  5. LOXAPINE [Suspect]
     Active Substance: LOXAPINE
     Indication: Schizoaffective disorder
  6. LOXAPINE [Suspect]
     Active Substance: LOXAPINE
     Indication: Personality disorder
     Dosage: 25 MILLIGRAM, QD (1 EVERY 1 DAYS)
  7. OXCARBAZEPINE [Suspect]
     Active Substance: OXCARBAZEPINE
     Indication: Schizoaffective disorder
     Dosage: 600 MILLIGRAM, QD (1 EVERY 1 DAYS)
  8. OXCARBAZEPINE [Suspect]
     Active Substance: OXCARBAZEPINE
     Indication: Personality disorder
  9. PALIPERIDONE [Suspect]
     Active Substance: PALIPERIDONE
     Indication: Schizoaffective disorder
  10. PALIPERIDONE [Suspect]
     Active Substance: PALIPERIDONE
     Indication: Personality disorder
  11. DIVALPROEX SODIUM [Suspect]
     Active Substance: DIVALPROEX SODIUM
     Indication: Schizoaffective disorder
     Dosage: 1500 MILLIGRAM, QD (1 EVERY 1 DAY)
  12. DIVALPROEX SODIUM [Suspect]
     Active Substance: DIVALPROEX SODIUM
     Indication: Personality disorder
  13. ZUCLOPENTHIXOL [Suspect]
     Active Substance: ZUCLOPENTHIXOL
     Indication: Schizoaffective disorder
  14. ZUCLOPENTHIXOL [Suspect]
     Active Substance: ZUCLOPENTHIXOL
     Indication: Personality disorder
  15. ZUCLOPENTHIXOL [Suspect]
     Active Substance: ZUCLOPENTHIXOL
     Indication: Schizoaffective disorder
  16. ZUCLOPENTHIXOL [Suspect]
     Active Substance: ZUCLOPENTHIXOL
     Indication: Personality disorder

REACTIONS (1)
  - Drug ineffective [Unknown]
